FAERS Safety Report 8472038-9 (Version None)
Quarter: 2012Q2

REPORT INFORMATION
  Report Type: 
  Country: None (occurrence: None)
  Receive Date: 20120323
  Receipt Date: 20111122
  Transmission Date: 20120825
  Serious: Yes (Hospitalization)
  Sender: FDA-Public Use
  Company Number: 163-21880-11100678

PATIENT
  Age: 70 Year
  Sex: Female
  Weight: 79.8331 kg

DRUGS (13)
  1. DEFERASIROX (DEFERASIROX) [Concomitant]
  2. LORATADINE [Concomitant]
  3. EPOETIN ALFA (EPOETIN ALFA) [Concomitant]
  4. PRAVASTATIN [Concomitant]
  5. ALPRAZOLAM [Concomitant]
  6. LOSARTAN/HCTZ (HYZAAR) [Concomitant]
  7. PROCHLORPERAZINE MALEATE [Concomitant]
  8. PROCRIT [Concomitant]
  9. REVLIMID [Suspect]
     Indication: MYELODYSPLASTIC SYNDROME
     Dosage: 10 MG, 1 IN 1 D, PO ; 10 MG, PO ; 5 MG, PO
     Route: 048
     Dates: start: 20111009, end: 20111012
  10. REVLIMID [Suspect]
     Indication: MYELODYSPLASTIC SYNDROME
     Dosage: 10 MG, 1 IN 1 D, PO ; 10 MG, PO ; 5 MG, PO
     Route: 048
     Dates: start: 20110925, end: 20110929
  11. REVLIMID [Suspect]
     Indication: MYELODYSPLASTIC SYNDROME
     Dosage: 10 MG, 1 IN 1 D, PO ; 10 MG, PO ; 5 MG, PO
     Route: 048
     Dates: start: 20111023
  12. DIAZEPAM [Concomitant]
  13. EXJADE [Concomitant]

REACTIONS (6)
  - RASH MACULAR [None]
  - FEBRILE NEUTROPENIA [None]
  - ORAL CANDIDIASIS [None]
  - RASH ERYTHEMATOUS [None]
  - PNEUMONIA [None]
  - RASH PRURITIC [None]
